FAERS Safety Report 9444280 (Version 2)
Quarter: 2013Q3

REPORT INFORMATION
  Report Type: Report from Study
  Country: US (occurrence: US)
  Receive Date: 20130807
  Receipt Date: 20130814
  Transmission Date: 20140515
  Serious: Yes (Hospitalization, Other)
  Sender: FDA-Public Use
  Company Number: PHHY2013US083630

PATIENT
  Age: 35 Year
  Sex: Female
  Weight: 60.6 kg

DRUGS (2)
  1. GILENYA [Suspect]
     Indication: MULTIPLE SCLEROSIS
     Dosage: 0.5 MG, QD
     Route: 048
     Dates: start: 20120227
  2. BACLOFEN [Concomitant]

REACTIONS (3)
  - Multiple sclerosis relapse [Recovering/Resolving]
  - Speech disorder [Recovering/Resolving]
  - Swelling face [Recovered/Resolved]
